FAERS Safety Report 5814671-6 (Version None)
Quarter: 2008Q3

REPORT INFORMATION
  Report Type: 
  Country: None (occurrence: None)
  Receive Date: 20080718
  Receipt Date: 20080315
  Transmission Date: 20090109
  Serious: No
  Sender: FDA-Public Use
  Company Number: US-KINGPHARMUSA00001-K200800318

PATIENT

DRUGS (1)
  1. LEVOXYL [Suspect]
     Dates: start: 20020101

REACTIONS (6)
  - DEPRESSION [None]
  - FATIGUE [None]
  - MALAISE [None]
  - MYALGIA [None]
  - NAUSEA [None]
  - VISION BLURRED [None]
